FAERS Safety Report 13016851 (Version 1)
Quarter: 2016Q4

REPORT INFORMATION
  Report Type: Spontaneous
  Country: CH (occurrence: CH)
  Receive Date: 20161212
  Receipt Date: 20161212
  Transmission Date: 20170207
  Serious: Yes (Hospitalization, Congenital Anomaly)
  Sender: FDA-Public Use
  Company Number: CH-CONCORDIA PHARMACEUTICALS INC.-GSH201612-006339

PATIENT
  Age: 3 Day
  Sex: Female

DRUGS (1)
  1. PLAQUENIL [Suspect]
     Active Substance: HYDROXYCHLOROQUINE SULFATE
     Indication: RHEUMATOID ARTHRITIS
     Route: 064

REACTIONS (3)
  - Neonatal gastrointestinal disorder [Recovered/Resolved]
  - Exposure during breast feeding [Unknown]
  - Haemangioma congenital [Unknown]

NARRATIVE: CASE EVENT DATE: 201608
